FAERS Safety Report 8431448-6 (Version None)
Quarter: 2012Q2

REPORT INFORMATION
  Report Type: 
  Country: None (occurrence: None)
  Receive Date: 20120607
  Receipt Date: 20120607
  Transmission Date: 20120825
  Serious: Yes (Other)
  Sender: FDA-Public Use
  Company Number: None

PATIENT
  Sex: Female
  Weight: 93.2 kg

DRUGS (1)
  1. VIMPAT [Suspect]
     Indication: CONVULSION
     Dosage: 2 CAPSULES TWICE A DAY 047 AT HOSPITAL THEN HOME

REACTIONS (9)
  - URINARY INCONTINENCE [None]
  - DECREASED APPETITE [None]
  - MOVEMENT DISORDER [None]
  - GAIT DISTURBANCE [None]
  - DIZZINESS [None]
  - SOMNOLENCE [None]
  - CONFUSIONAL STATE [None]
  - BACK PAIN [None]
  - VERTIGO [None]
